FAERS Safety Report 16133184 (Version 6)
Quarter: 2020Q2

REPORT INFORMATION
  Report Type: Spontaneous
  Country: ES (occurrence: ES)
  Receive Date: 20190329
  Receipt Date: 20200526
  Transmission Date: 20200713
  Serious: Yes (Life-Threatening, Hospitalization, Other)
  Sender: FDA-Public Use
  Company Number: ES-ROCHE-2289527

PATIENT
  Age: 45 Year
  Sex: Male

DRUGS (10)
  1. AZATHIOPRINE. [Concomitant]
     Active Substance: AZATHIOPRINE
     Dosage: UNK
     Route: 065
     Dates: start: 201802
  2. MYCOPHENOLATE MOFETIL. [Suspect]
     Active Substance: MYCOPHENOLATE MOFETIL
     Indication: IMMUNOSUPPRESSION
     Route: 065
     Dates: start: 201704
  3. ATORVASTATIN [Suspect]
     Active Substance: ATORVASTATIN
     Indication: LIPIDS ABNORMAL
     Route: 065
  4. PRALUENT [Suspect]
     Active Substance: ALIROCUMAB
     Route: 065
  5. PREDNISONE. [Suspect]
     Active Substance: PREDNISONE
     Indication: IMMUNOSUPPRESSION
     Route: 065
  6. EVEROLIMUS. [Suspect]
     Active Substance: EVEROLIMUS
     Indication: IMMUNOSUPPRESSION
     Route: 065
     Dates: start: 201704, end: 201802
  7. EZETIMIBE. [Suspect]
     Active Substance: EZETIMIBE
     Indication: LIPIDS ABNORMAL
     Route: 065
  8. PRALUENT [Suspect]
     Active Substance: ALIROCUMAB
     Indication: DYSLIPIDAEMIA
     Route: 065
     Dates: start: 201709
  9. TACROLIMUS. [Suspect]
     Active Substance: TACROLIMUS
     Indication: IMMUNOSUPPRESSION
     Route: 065
  10. PITAVASTATIN. [Suspect]
     Active Substance: PITAVASTATIN CALCIUM
     Indication: LIPIDS ABNORMAL
     Route: 065

REACTIONS (16)
  - Cough [Recovered/Resolved]
  - Skin lesion [Recovered/Resolved]
  - Blood cholesterol increased [Recovering/Resolving]
  - Metabolic acidosis [Recovered/Resolved]
  - Hypotension [Recovered/Resolved]
  - Odynophagia [Recovered/Resolved]
  - Sepsis [Recovered/Resolved]
  - Hepatic function abnormal [Unknown]
  - Anuria [Recovered/Resolved]
  - Pyrexia [Recovered/Resolved]
  - Sputum discoloured [Recovered/Resolved]
  - Pneumonia [Recovered/Resolved]
  - Respiratory tract infection [Recovered/Resolved]
  - Pruritus [Recovering/Resolving]
  - Hypercholesterolaemia [Recovering/Resolving]
  - Lipids abnormal [Recovering/Resolving]

NARRATIVE: CASE EVENT DATE: 201709
